FAERS Safety Report 8243687-8 (Version None)
Quarter: 2012Q1

REPORT INFORMATION
  Report Type: 
  Country: None (occurrence: None)
  Receive Date: 20120329
  Receipt Date: 20110909
  Transmission Date: 20120608
  Serious: No
  Sender: FDA-Public Use
  Company Number: US-MYLANLABS-2011S1019289

PATIENT
  Age: 7 Month
  Sex: Male
  Weight: 11.34 kg

DRUGS (2)
  1. ALBUTEROL SULATE [Suspect]
     Route: 055
     Dates: start: 20100101
  2. ALBUTEROL SULATE [Suspect]
     Indication: ASTHMA
     Route: 055
     Dates: start: 20100101, end: 20100101

REACTIONS (3)
  - PSYCHOMOTOR HYPERACTIVITY [None]
  - INCORRECT DOSE ADMINISTERED [None]
  - ABDOMINAL PAIN [None]
